FAERS Safety Report 6833399-7 (Version None)
Quarter: 2010Q3

REPORT INFORMATION
  Report Type: 
  Country: None (occurrence: None)
  Receive Date: 20100712
  Receipt Date: 20070320
  Transmission Date: 20110219
  Serious: No
  Sender: FDA-Public Use
  Company Number: US-PFIZER INC-2007022608

PATIENT
  Sex: Female
  Weight: 63.5 kg

DRUGS (10)
  1. CHANTIX [Suspect]
     Indication: SMOKING CESSATION THERAPY
     Dates: start: 20070201, end: 20070318
  2. PREVACID [Concomitant]
  3. TOPAMAX [Concomitant]
  4. LUNESTA [Concomitant]
  5. ALL OTHER THERAPEUTIC PRODUCTS [Concomitant]
  6. PLENDIL [Concomitant]
  7. BETA BLOCKING AGENTS [Concomitant]
  8. KLONOPIN [Concomitant]
  9. HYDROCODONE BITARTRATE [Concomitant]
  10. WELLBUTRIN [Concomitant]
     Indication: DEPRESSION

REACTIONS (2)
  - ABNORMAL DREAMS [None]
  - NAUSEA [None]
